FAERS Safety Report 4606554-4 (Version None)
Quarter: 2005Q2

REPORT INFORMATION
  Report Type: 
  Country: None (occurrence: None)
  Receive Date: 20050223
  Receipt Date: 20040812
  Transmission Date: 20051028
  Serious: Yes (Hospitalization)
  Sender: FDA-Public Use
  Company Number: WAES 0408USA01287

PATIENT
  Age: 79 Year
  Sex: Male

DRUGS (8)
  1. ZOCOR [Suspect]
     Dosage: 10 MG/DAILY/PO
     Route: 048
     Dates: start: 20040401, end: 20040701
  2. ACIPHEX [Concomitant]
  3. EFFEXOR [Concomitant]
  4. HALCION [Concomitant]
  5. MIACALCIN [Concomitant]
  6. NEURONTIN [Concomitant]
  7. METHADONE HCL [Concomitant]
  8. NORTRIPTYLINE HCL [Concomitant]

REACTIONS (1)
  - RHABDOMYOLYSIS [None]
